FAERS Safety Report 16816397 (Version 1)
Quarter: 2019Q3

REPORT INFORMATION
  Report Type: Spontaneous
  Country: US (occurrence: US)
  Receive Date: 20190917
  Receipt Date: 20190917
  Transmission Date: 20191005
  Serious: No
  Sender: FDA-Public Use
  Company Number: US-RECKITT BENCKISER HEALTHCARE INT LIMITED-RB-83569-2019

PATIENT
  Age: 73 Year
  Sex: Female

DRUGS (6)
  1. MUCINEX [Suspect]
     Active Substance: GUAIFENESIN
     Indication: CHILLS
  2. MUCINEX [Suspect]
     Active Substance: GUAIFENESIN
     Indication: COUGH
  3. MUCINEX [Suspect]
     Active Substance: GUAIFENESIN
     Indication: RESPIRATORY DISORDER
  4. XELJANZ XR [Concomitant]
     Active Substance: TOFACITINIB CITRATE
     Indication: PRODUCT USED FOR UNKNOWN INDICATION
     Dosage: UNK
     Route: 065
  5. MUCINEX [Suspect]
     Active Substance: GUAIFENESIN
     Indication: NASOPHARYNGITIS
     Dosage: 600 MILLIGRAM, QD
     Route: 065
  6. MUCINEX [Suspect]
     Active Substance: GUAIFENESIN
     Indication: SINUS OPERATION

REACTIONS (4)
  - Nausea [Unknown]
  - Underdose [Unknown]
  - Drug ineffective [Not Recovered/Not Resolved]
  - Ill-defined disorder [Unknown]
